FAERS Safety Report 8604343-7 (Version None)
Quarter: 2012Q3

REPORT INFORMATION
  Report Type: 
  Country: None (occurrence: None)
  Receive Date: 20120820
  Receipt Date: 20120810
  Transmission Date: 20120928
  Serious: Yes (Other)
  Sender: FDA-Public Use
  Company Number: BR-ACCORD-014418

PATIENT
  Age: 71 Year
  Sex: Female
  Weight: 62 kg

DRUGS (5)
  1. DEXAMETHASONE [Concomitant]
     Indication: PREMEDICATION
     Route: 042
     Dates: start: 20120731, end: 20120731
  2. PACLITAXEL [Suspect]
     Route: 042
     Dates: start: 20120731, end: 20120731
  3. RANITIDINE [Concomitant]
     Indication: PREMEDICATION
     Route: 042
     Dates: start: 20120731, end: 20120731
  4. ONDANSETRON [Concomitant]
     Indication: PREMEDICATION
     Route: 042
     Dates: start: 20120731, end: 20120731
  5. DIPHENHYDRAMINE HYDROCHLORIDE [Concomitant]
     Indication: PREMEDICATION
     Route: 042
     Dates: start: 20120731, end: 20120731

REACTIONS (4)
  - BACK PAIN [None]
  - DEEP VEIN THROMBOSIS [None]
  - HYPERTENSION [None]
  - HYPERAEMIA [None]
